FAERS Safety Report 8113279-X (Version None)
Quarter: 2012Q1

REPORT INFORMATION
  Report Type: 
  Country: None (occurrence: None)
  Receive Date: 20120203
  Receipt Date: 20120201
  Transmission Date: 20120608
  Serious: No
  Sender: FDA-Public Use
  Company Number: US-PFIZER INC-2012028741

PATIENT
  Sex: Female
  Weight: 58.95 kg

DRUGS (2)
  1. ZOLOFT [Suspect]
     Indication: MOOD SWINGS
     Dosage: 100 MG, DAILY
     Route: 048
     Dates: start: 20110101
  2. ZOLOFT [Suspect]
     Dosage: 50 MG DAILY
     Route: 048
     Dates: start: 20110101

REACTIONS (1)
  - INSOMNIA [None]
